FAERS Safety Report 6691774-8 (Version None)
Quarter: 2010Q2

REPORT INFORMATION
  Report Type: 
  Country: None (occurrence: None)
  Receive Date: 20100422
  Receipt Date: 20060829
  Transmission Date: 20101027
  Serious: No
  Sender: FDA-Public Use
  Company Number: US-ASTRAZENECA-2006UW17065

PATIENT
  Age: 70 Year
  Sex: Female
  Weight: 52.2 kg

DRUGS (12)
  1. TOPROL-XL [Suspect]
     Indication: TACHYCARDIA
     Route: 048
     Dates: start: 20050101
  2. TOPROL-XL [Suspect]
     Indication: PALPITATIONS
     Route: 048
     Dates: start: 20050101
  3. TOPROL-XL [Suspect]
     Route: 048
     Dates: start: 20070101
  4. TOPROL-XL [Suspect]
     Route: 048
     Dates: start: 20070101
  5. TOPROL-XL [Suspect]
     Route: 048
  6. TOPROL-XL [Suspect]
     Route: 048
  7. TOPROL-XL [Suspect]
     Route: 048
     Dates: start: 20090101
  8. TOPROL-XL [Suspect]
     Route: 048
     Dates: start: 20090101
  9. NORVASC [Concomitant]
  10. SIMVASTATIN [Concomitant]
  11. POTASSIUM [Concomitant]
  12. VITAMINS [Concomitant]

REACTIONS (3)
  - BLOOD POTASSIUM DECREASED [None]
  - POLLAKIURIA [None]
  - POLYURIA [None]
